FAERS Safety Report 4860992-3 (Version None)
Quarter: 2005Q4

REPORT INFORMATION
  Report Type: 
  Country: None (occurrence: None)
  Receive Date: 20051216
  Receipt Date: 20051213
  Transmission Date: 20060501
  Serious: Yes (Other)
  Sender: FDA-Public Use
  Company Number: 200513095GDS

PATIENT
  Age: 32 Year
  Sex: Female

DRUGS (2)
  1. AVELOX [Suspect]
     Indication: RESPIRATORY TRACT INFECTION
     Dosage: 400 MG, QD,
     Dates: start: 20050424
  2. FLIXOTIDE [Concomitant]

REACTIONS (5)
  - EYE DISORDER [None]
  - IRIS ATROPHY [None]
  - IRIS DISORDER [None]
  - IRIS HYPERPIGMENTATION [None]
  - RHINITIS ALLERGIC [None]
